FAERS Safety Report 12084482 (Version 7)
Quarter: 2017Q2

REPORT INFORMATION
  Report Type: Spontaneous
  Country: US (occurrence: US)
  Receive Date: 20160217
  Receipt Date: 20170421
  Transmission Date: 20170829
  Serious: Yes (Hospitalization, Other)
  Sender: FDA-Public Use
  Company Number: US-GLAXOSMITHKLINE-US2016020686

PATIENT
  Sex: Female

DRUGS (9)
  1. ADVAIR DISKUS [Suspect]
     Active Substance: FLUTICASONE PROPIONATE\SALMETEROL XINAFOATE
     Indication: ASTHMA
     Dosage: 1 PUFF(S), QD
     Route: 055
     Dates: start: 2005, end: 201702
  2. DILTIAZEM. [Suspect]
     Active Substance: DILTIAZEM
     Indication: PRODUCT USED FOR UNKNOWN INDICATION
  3. XARELTO [Concomitant]
     Active Substance: RIVAROXABAN
  4. TOPROL XL [Concomitant]
     Active Substance: METOPROLOL SUCCINATE
  5. ADVAIR DISKUS [Suspect]
     Active Substance: FLUTICASONE PROPIONATE\SALMETEROL XINAFOATE
     Dosage: UNK
  6. ADVAIR DISKUS [Suspect]
     Active Substance: FLUTICASONE PROPIONATE\SALMETEROL XINAFOATE
     Dosage: 1 PUFF(S), QD
  7. CELEBREX [Concomitant]
     Active Substance: CELECOXIB
  8. ARMOUR THYROID [Concomitant]
     Active Substance: THYROID, PORCINE
  9. TYLENOL [Concomitant]
     Active Substance: ACETAMINOPHEN

REACTIONS (13)
  - Tongue ulceration [Not Recovered/Not Resolved]
  - Glossodynia [Recovering/Resolving]
  - Drug dose omission [Unknown]
  - Stomatitis [Not Recovered/Not Resolved]
  - Pruritus [Not Recovered/Not Resolved]
  - Intentional underdose [Unknown]
  - Pneumonia [Unknown]
  - Burning sensation [Unknown]
  - Urticaria [Not Recovered/Not Resolved]
  - Oral mucosal blistering [Unknown]
  - Diabetes mellitus [Unknown]
  - Overdose [Unknown]
  - Tongue disorder [Unknown]

NARRATIVE: CASE EVENT DATE: 2015
